FAERS Safety Report 18544606 (Version 1)
Quarter: 2020Q4

REPORT INFORMATION
  Report Type: Report from Study
  Country: ES (occurrence: ES)
  Receive Date: 20201125
  Receipt Date: 20201125
  Transmission Date: 20210114
  Serious: Yes (Death, Hospitalization)
  Sender: FDA-Public Use
  Company Number: ES-AXELLIA-003514

PATIENT
  Age: 52 Year
  Sex: Male
  Weight: 62 kg

DRUGS (3)
  1. CEFTRIAXONE. [Suspect]
     Active Substance: CEFTRIAXONE
     Indication: ENDOCARDITIS BACTERIAL
     Dosage: DOSE UNIT FREQUENCY: 2 G, FREQUENCY UNIT: 1 DAY
     Route: 042
     Dates: start: 20170208, end: 20170208
  2. VANCOMYCIN [Suspect]
     Active Substance: VANCOMYCIN
     Indication: ENDOCARDITIS BACTERIAL
     Dosage: DOSE UNIT FREQUENCY: 3 G, DOSE PER INTAKE: 1 G,
     Route: 042
     Dates: start: 20170114, end: 20170208
  3. CEFTRIAXONE. [Suspect]
     Active Substance: CEFTRIAXONE
     Indication: ACUTE ENDOCARDITIS
     Dosage: DOSE UNIT FREQUENCY: 2 G,DOSE PER INTAKE: 2 G,
     Route: 042
     Dates: start: 20170124, end: 20170202

REACTIONS (1)
  - Anaphylactic shock [Fatal]

NARRATIVE: CASE EVENT DATE: 20170208
